FAERS Safety Report 7349458-9 (Version None)
Quarter: 2011Q1

REPORT INFORMATION
  Report Type: 
  Country: None (occurrence: None)
  Receive Date: 20110314
  Receipt Date: 20100512
  Transmission Date: 20110831
  Serious: No
  Sender: FDA-Public Use
  Company Number: US-ABBOTT-10P-163-0645475-00

PATIENT
  Sex: Male
  Weight: 132.57 kg

DRUGS (3)
  1. TRAZODONE HCL [Suspect]
     Indication: DEPRESSION
     Dates: start: 19840101
  2. TRAZODONE HCL [Suspect]
     Indication: INSOMNIA
  3. DEPAKOTE [Suspect]
     Indication: CONVULSION
     Dates: start: 19800101, end: 20000101

REACTIONS (2)
  - WEIGHT LOSS POOR [None]
  - WEIGHT INCREASED [None]
